FAERS Safety Report 8168661-1 (Version None)
Quarter: 2012Q1

REPORT INFORMATION
  Report Type: 
  Country: None (occurrence: None)
  Receive Date: 20120103
  Receipt Date: 20110928
  Transmission Date: 20120608
  Serious: No
  Sender: FDA-Public Use
  Company Number: AE-2011-001822

PATIENT
  Age: 51 Year
  Sex: Female
  Weight: 45.8133 kg

DRUGS (3)
  1. INCIVEK [Suspect]
     Dosage: 2250 MG (750 MG,3 IN 1 D),ORAL
     Route: 048
     Dates: start: 20110917
  2. PEGASYS [Concomitant]
  3. RIBAVIRIN [Concomitant]

REACTIONS (7)
  - VOMITING [None]
  - INJECTION SITE REACTION [None]
  - NAUSEA [None]
  - DIARRHOEA [None]
  - INCORRECT STORAGE OF DRUG [None]
  - DECREASED APPETITE [None]
  - MEDICATION ERROR [None]
